FAERS Safety Report 5056933-9 (Version None)
Quarter: 2006Q2

REPORT INFORMATION
  Report Type: 
  Country: None (occurrence: None)
  Receive Date: 20060622
  Receipt Date: 20050719
  Transmission Date: 20061013
  Serious: Yes (Hospitalization)
  Sender: FDA-Public Use
  Company Number: US-JNJFOC-20050507433

PATIENT
  Age: 44 Year
  Sex: Male
  Weight: 115.6672 kg

DRUGS (4)
  1. DURAGESIC-100 [Suspect]
     Indication: PAIN
     Dosage: SEE IMAGE
     Route: 048
     Dates: start: 20050101, end: 20050101
  2. DURAGESIC-100 [Suspect]
     Indication: PAIN
     Dosage: SEE IMAGE
     Route: 048
     Dates: start: 20050523, end: 20050607
  3. GLUCERNA (GLUCERNA ^ABBOTT^) TABLETS [Concomitant]
  4. LORTAB [Concomitant]

REACTIONS (7)
  - APPLICATION SITE BLEEDING [None]
  - APPLICATION SITE PRURITUS [None]
  - APPLICATION SITE SWELLING [None]
  - DRUG INEFFECTIVE [None]
  - HYPOVENTILATION [None]
  - NAUSEA [None]
  - SOMNOLENCE [None]
